FAERS Safety Report 24977548 (Version 3)
Quarter: 2025Q2

REPORT INFORMATION
  Report Type: Report from Study
  Country: AT (occurrence: AT)
  Receive Date: 20250217
  Receipt Date: 20250409
  Transmission Date: 20250717
  Serious: Yes (Hospitalization, Other)
  Sender: NOVARTIS
  Company Number: AT-002147023-NVSC2025AT022167

PATIENT
  Age: 35 Year
  Sex: Female

DRUGS (7)
  1. FABHALTA [Suspect]
     Active Substance: IPTACOPAN HYDROCHLORIDE
     Indication: Atypical haemolytic uraemic syndrome
     Dosage: 200 MG, BID, (STRENGTH 200 MG)
     Route: 048
     Dates: start: 20250127
  2. FABHALTA [Suspect]
     Active Substance: IPTACOPAN HYDROCHLORIDE
     Indication: Immune-complex membranoproliferative glomerulonephritis
  3. CYCLOSPORINE [Concomitant]
     Active Substance: CYCLOSPORINE
     Indication: Product used for unknown indication
     Route: 065
     Dates: start: 2009
  4. CELLCEPT [Concomitant]
     Active Substance: MYCOPHENOLATE MOFETIL
     Indication: Product used for unknown indication
     Route: 065
     Dates: start: 2009
  5. PREDNISONE [Concomitant]
     Active Substance: PREDNISONE
     Indication: Product used for unknown indication
     Route: 065
     Dates: start: 2009
  6. DAPAGLIFLOZIN [Concomitant]
     Active Substance: DAPAGLIFLOZIN
     Indication: Product used for unknown indication
     Route: 065
  7. CANDESARTAN [Concomitant]
     Active Substance: CANDESARTAN
     Indication: Product used for unknown indication
     Route: 065

REACTIONS (1)
  - Pneumococcal bacteraemia [Recovered/Resolved]

NARRATIVE: CASE EVENT DATE: 20250203
